FAERS Safety Report 26171323 (Version 1)
Quarter: 2025Q4

REPORT INFORMATION
  Report Type: Spontaneous
  Country: US (occurrence: US)
  Receive Date: 20251217
  Receipt Date: 20251217
  Transmission Date: 20260117
  Serious: Yes (Life-Threatening, Hospitalization, Other)
  Sender: PFIZER
  Company Number: US-PFIZER INC-PV202500145446

PATIENT
  Age: 65 Year
  Sex: Male

DRUGS (3)
  1. BEVACIZUMAB [Suspect]
     Active Substance: BEVACIZUMAB
     Indication: Astrocytoma malignant
     Dosage: UNK, CYCLIC
  2. VORASIDENIB [Suspect]
     Active Substance: VORASIDENIB
     Indication: Astrocytoma malignant
     Dosage: UNK, CYCLIC
  3. PEMBROLIZUMAB [Suspect]
     Active Substance: PEMBROLIZUMAB
     Indication: Astrocytoma malignant
     Dosage: UNK, CYCLIC

REACTIONS (2)
  - Supraventricular tachycardia [Unknown]
  - Off label use [Unknown]
